FAERS Safety Report 16698098 (Version 1)
Quarter: 2019Q3

REPORT INFORMATION
  Report Type: Spontaneous
  Country: DE (occurrence: DE)
  Receive Date: 20190813
  Receipt Date: 20190813
  Transmission Date: 20191004
  Serious: Yes (Other)
  Sender: FDA-Public Use
  Company Number: DE-PFIZER INC-2019338966

PATIENT
  Age: 40 Year
  Sex: Female

DRUGS (2)
  1. TAVOR (LORAZEPAM) [Suspect]
     Active Substance: LORAZEPAM
     Dosage: 3.5 MG, UNK
  2. LEPONEX [Concomitant]
     Active Substance: CLOZAPINE
     Dosage: 250 MG, UNK

REACTIONS (7)
  - Medication error [Unknown]
  - Lethargy [Unknown]
  - Tachycardia [Unknown]
  - Hormone level abnormal [Unknown]
  - Anxiety [Unknown]
  - Panic attack [Unknown]
  - Muscle spasms [Unknown]
